FAERS Safety Report 10533885 (Version 3)
Quarter: 2015Q1

REPORT INFORMATION
  Report Type: Spontaneous
  Country: ZA (occurrence: None)
  Receive Date: 20141020
  Receipt Date: 20150209
  Transmission Date: 20150720
  Serious: Yes (Congenital Anomaly, Other)
  Sender: FDA-Public Use
  Company Number: A1084686A

PATIENT
  Sex: Male
  Weight: 2.2 kg

DRUGS (10)
  1. FOLATE SUPPLEMENT (FOLIC ACID) [Concomitant]
  2. NEVIRAPINE. [Suspect]
     Active Substance: NEVIRAPINE
     Indication: HIV INFECTION
     Dosage: U
     Route: 064
     Dates: start: 20050501, end: 20140408
  3. KALETRA [Suspect]
     Active Substance: LOPINAVIR\RITONAVIR
     Indication: HIV INFECTION
     Dosage: TOTAL DAILY DOSE OF 8 TABLETS/CAPSULES, TRANSPLACENTAL
     Route: 064
     Dates: start: 20140408
  4. TENOFOVIR DISOPROXIL FUMARATE [Suspect]
     Active Substance: TENOFOVIR DISOPROXIL FUMARATE
     Indication: HIV INFECTION
     Dosage: TOTAL DAILY DOSE OF 8 TABLETS/CAPSULES, TRANSPLACENTAL
     Route: 064
     Dates: start: 20140408
  5. ISONIAZIDE [Suspect]
     Active Substance: ISONIAZID
     Indication: PULMONARY TUBERCULOSIS
     Route: 064
     Dates: start: 20140416
  6. ETHAMBUTOL [Suspect]
     Active Substance: ETHAMBUTOL HYDROCHLORIDE
     Indication: PULMONARY TUBERCULOSIS
     Route: 064
     Dates: start: 20140416
  7. LAMIVUDINE. [Suspect]
     Active Substance: LAMIVUDINE
     Indication: HIV INFECTION
     Route: 064
     Dates: start: 20050501
  8. STAVUDINE (STAVUDINE) UNKNOWN [Suspect]
     Active Substance: STAVUDINE
     Indication: HIV INFECTION
     Dosage: U
     Route: 064
     Dates: start: 20050501, end: 20140408
  9. RIFAMPIN (RIFAMPICIN) (RIFAMPICIN) [Suspect]
     Active Substance: RIFAMPIN
     Indication: PULMONARY TUBERCULOSIS
     Route: 064
     Dates: start: 20140416
  10. PYRAZINAMIDE (PYRAZINAMIDE) [Suspect]
     Active Substance: PYRAZINAMIDE
     Indication: PULMONARY TUBERCULOSIS
     Route: 064
     Dates: start: 20140416

REACTIONS (12)
  - Foetal growth restriction [None]
  - Protrusion tongue [None]
  - Oligohydramnios [None]
  - Pericardial effusion [None]
  - Dysmorphism [None]
  - Placental insufficiency [None]
  - Low set ears [None]
  - Premature labour [None]
  - Congenital nose malformation [None]
  - Trisomy 21 [None]
  - Maternal drugs affecting foetus [None]
  - Low birth weight baby [None]

NARRATIVE: CASE EVENT DATE: 20140515
